FAERS Safety Report 9305193 (Version 1)
Quarter: 2013Q2

REPORT INFORMATION
  Report Type: Spontaneous
  Country: US (occurrence: US)
  Receive Date: 20130523
  Receipt Date: 20130523
  Transmission Date: 20140414
  Serious: Yes (Other)
  Sender: FDA-Public Use
  Company Number: US-JNJFOC-20130508252

PATIENT
  Age: 61 Year
  Sex: Male
  Weight: 115.67 kg

DRUGS (11)
  1. XARELTO [Suspect]
     Indication: CEREBROVASCULAR ACCIDENT PROPHYLAXIS
     Route: 048
     Dates: start: 20130201
  2. XARELTO [Suspect]
     Indication: ATRIAL FIBRILLATION
     Route: 048
     Dates: start: 20130201
  3. PRAVASTATIN [Concomitant]
     Route: 048
  4. BABY ASPIRIN [Concomitant]
     Route: 048
  5. FUROSEMIDE [Concomitant]
     Indication: DIURETIC THERAPY
     Route: 048
  6. LISINOPRIL [Concomitant]
     Route: 048
  7. ALLOPURINOL [Concomitant]
     Indication: GOUT
     Route: 048
     Dates: start: 201304
  8. POTASSIUM [Concomitant]
     Route: 048
  9. CARVEDILOL [Concomitant]
     Route: 048
  10. RANITIDINE [Concomitant]
     Dosage: 25 MG TWICE DAILY
     Route: 048
  11. DOCUSATE SODIUM [Concomitant]
     Dosage: 100 MG TWO AT NIGHT
     Route: 048

REACTIONS (4)
  - Weight increased [Not Recovered/Not Resolved]
  - Atrial fibrillation [Unknown]
  - Somnolence [Not Recovered/Not Resolved]
  - Inappropriate schedule of drug administration [Not Recovered/Not Resolved]
